FAERS Safety Report 5710120-7 (Version None)
Quarter: 2008Q2

REPORT INFORMATION
  Report Type: 
  Country: None (occurrence: None)
  Receive Date: 20080418
  Receipt Date: 20071119
  Transmission Date: 20081010
  Serious: No
  Sender: FDA-Public Use
  Company Number: US-ASTRAZENECA-2007UW26694

PATIENT
  Age: 70 Year
  Sex: Female
  Weight: 68 kg

DRUGS (8)
  1. TOPROL-XL [Suspect]
     Indication: HYPERTENSION
  2. SYNTHROID [Concomitant]
  3. DIOVAN [Concomitant]
  4. LESCHOL [Concomitant]
  5. ZETIA [Concomitant]
  6. FOLIC ACID WITH B12 [Concomitant]
  7. ACTONEL [Concomitant]
  8. HYDROCHLOROTHIAZIDE [Concomitant]

REACTIONS (1)
  - INCREASED APPETITE [None]
